FAERS Safety Report 8147869-5 (Version None)
Quarter: 2012Q1

REPORT INFORMATION
  Report Type: 
  Country: None (occurrence: None)
  Receive Date: 20120218
  Receipt Date: 20110502
  Transmission Date: 20120608
  Serious: No
  Sender: FDA-Public Use
  Company Number: US-ALLERGAN-1104166US

PATIENT
  Age: 84 Year
  Sex: Female
  Weight: 58.503 kg

DRUGS (13)
  1. DYSPORT [Suspect]
     Indication: BLEPHAROSPASM
     Dosage: 70 UNITS, SINGLE
     Dates: start: 20100127, end: 20100127
  2. LEVOTHYROXINE SODIUM [Concomitant]
     Dosage: 100 A?G, QD
     Dates: start: 20100501
  3. BOTULINUM TOXIN TYPE A [Suspect]
     Dosage: UNK UNITS
     Dates: start: 20100505, end: 20100505
  4. BOTULINUM TOXIN TYPE A [Suspect]
     Dosage: 73 UNITS, SINGLE
     Dates: start: 20100727, end: 20100727
  5. LEVOTHYROXINE SODIUM [Concomitant]
     Indication: PRODUCT USED FOR UNKNOWN INDICATION
     Dosage: 80 MG, UNK
  6. SIMVASTATIN [Concomitant]
     Indication: PRODUCT USED FOR UNKNOWN INDICATION
     Dosage: 20 MG, QD
  7. DYSPORT [Suspect]
     Dosage: 73 UNK, SINGLE
     Dates: start: 20100726, end: 20100726
  8. CARBIDOPA + LEVODOPA [Concomitant]
     Indication: RESTLESS LEGS SYNDROME
     Dosage: 25 MG, BID
  9. VITAMIN B-12 [Concomitant]
     Indication: PRODUCT USED FOR UNKNOWN INDICATION
     Dosage: 20 MG, QD
     Route: 060
  10. PROPOXYPHENE HYDROCHLORIDE [Concomitant]
     Indication: PRODUCT USED FOR UNKNOWN INDICATION
     Dosage: 100 MG, Q6HR
  11. BOTULINUM TOXIN TYPE A [Suspect]
     Indication: BLEPHAROSPASM
     Dosage: UNK UNITS
     Dates: start: 20100127, end: 20100127
  12. ATENOLOL [Concomitant]
     Indication: PRODUCT USED FOR UNKNOWN INDICATION
     Dosage: 50 MG, QD
  13. LORAZEPAM [Concomitant]
     Indication: PRODUCT USED FOR UNKNOWN INDICATION
     Dosage: 1 MG, QHS

REACTIONS (19)
  - ABDOMINAL DISCOMFORT [None]
  - NERVOUSNESS [None]
  - DIPLOPIA [None]
  - MUSCULAR WEAKNESS [None]
  - TREMOR [None]
  - FEELING ABNORMAL [None]
  - NECK PAIN [None]
  - MUSCLE ATROPHY [None]
  - ASTHENIA [None]
  - FALL [None]
  - VISUAL IMPAIRMENT [None]
  - WEIGHT DECREASED [None]
  - CUTIS LAXA [None]
  - FACIAL PARESIS [None]
  - VISION BLURRED [None]
  - AMNESIA [None]
  - WRONG TECHNIQUE IN DRUG USAGE PROCESS [None]
  - CONTUSION [None]
  - SKIN TIGHTNESS [None]
